FAERS Safety Report 8842866 (Version 6)
Quarter: 2013Q4

REPORT INFORMATION
  Report Type: Spontaneous
  Country: US (occurrence: US)
  Receive Date: 20121016
  Receipt Date: 20131120
  Transmission Date: 20140711
  Serious: Yes (Hospitalization, Disabling, Other)
  Sender: FDA-Public Use
  Company Number: US-009507513-1204USA04226

PATIENT
  Sex: Female
  Weight: 71.66 kg

DRUGS (7)
  1. FOSAMAX [Suspect]
     Indication: OSTEOPOROSIS
     Dosage: 70 MG, QW
     Route: 048
     Dates: start: 20060207, end: 200611
  2. FOSAMAX PLUS D [Suspect]
     Indication: OSTEOPOROSIS
     Dosage: 70MG/2800IU
     Route: 048
     Dates: start: 200611, end: 200812
  3. ALENDRONATE SODIUM [Suspect]
     Indication: OSTEOPOROSIS
     Dosage: 70 MG, QW
     Route: 048
     Dates: start: 200812, end: 200908
  4. ALENDRONATE SODIUM [Suspect]
     Dosage: 70 MG, UNK
     Route: 048
     Dates: end: 20100426
  5. CYANOCOBALAMIN [Concomitant]
     Dosage: 1000 IU, QD
  6. GERITOL COMPLETE [Concomitant]
     Dosage: UNK
  7. SIMVASTATIN [Concomitant]
     Indication: HYPERCHOLESTEROLAEMIA

REACTIONS (17)
  - Hip fracture [Recovered/Resolved]
  - Osteoporosis [Not Recovered/Not Resolved]
  - Femur fracture [Not Recovered/Not Resolved]
  - Intramedullary rod insertion [Unknown]
  - Spondylolisthesis [Unknown]
  - Intervertebral disc protrusion [Unknown]
  - Spinal compression fracture [Unknown]
  - Spinal osteoarthritis [Not Recovered/Not Resolved]
  - Gallbladder operation [Unknown]
  - Scoliosis [Unknown]
  - Syncope [Unknown]
  - Lumbar radiculopathy [Unknown]
  - Intervertebral disc degeneration [Unknown]
  - Depression [Unknown]
  - Hernia hiatus repair [Unknown]
  - Head injury [Unknown]
  - Pain in extremity [Not Recovered/Not Resolved]
